FAERS Safety Report 11656875 (Version 1)
Quarter: 2015Q4

REPORT INFORMATION
  Report Type: Spontaneous
  Country: US (occurrence: US)
  Receive Date: 20151023
  Receipt Date: 20151023
  Transmission Date: 20160304
  Serious: Yes (Other)
  Sender: FDA-Public Use
  Company Number: US-BAYER-2015-443763

PATIENT
  Age: 62 Year
  Sex: Male

DRUGS (1)
  1. CIPRO [Suspect]
     Active Substance: CIPROFLOXACIN HYDROCHLORIDE
     Indication: LOCALISED INFECTION
     Dosage: UNK
     Route: 042
     Dates: start: 2013

REACTIONS (5)
  - Constipation [None]
  - Dyspepsia [None]
  - Hypoaesthesia [None]
  - Gastric disorder [Not Recovered/Not Resolved]
  - Blindness [Not Recovered/Not Resolved]

NARRATIVE: CASE EVENT DATE: 2013
